FAERS Safety Report 5159375-0 (Version None)
Quarter: 2006Q4

REPORT INFORMATION
  Report Type: 
  Country: None (occurrence: None)
  Receive Date: 20061120
  Receipt Date: 20061113
  Transmission Date: 20070319
  Serious: Yes (Other)
  Sender: FDA-Public Use
  Company Number: 2006SP006286

PATIENT
  Age: 9 Year
  Sex: Male

DRUGS (1)
  1. CLARINEX [Suspect]
     Indication: DRUG USE FOR UNKNOWN INDICATION
     Dosage: 0 DF; PO
     Route: 048
     Dates: start: 20061108

REACTIONS (1)
  - MUSCLE TWITCHING [None]
